FAERS Safety Report 7763770-0 (Version None)
Quarter: 2011Q3

REPORT INFORMATION
  Report Type: 
  Country: None (occurrence: None)
  Receive Date: 20110919
  Receipt Date: 20110915
  Transmission Date: 20111222
  Serious: Yes (Death)
  Sender: FDA-Public Use
  Company Number: 2011SP043611

PATIENT
  Age: 72 Year
  Sex: Female
  Weight: 50 kg

DRUGS (8)
  1. TEMODAL [Suspect]
     Indication: ANAPLASTIC ASTROCYTOMA
     Dosage: PO, 135 MG/M2;QD;IV, 150 MG/M2;QD;IV
     Route: 048
     Dates: start: 20110509, end: 20110513
  2. TEMODAL [Suspect]
     Indication: ANAPLASTIC ASTROCYTOMA
     Dosage: PO, 135 MG/M2;QD;IV, 150 MG/M2;QD;IV
     Route: 048
     Dates: start: 20110606, end: 20110610
  3. TEMODAL [Suspect]
     Indication: ANAPLASTIC ASTROCYTOMA
     Dosage: PO, 135 MG/M2;QD;IV, 150 MG/M2;QD;IV
     Route: 048
     Dates: start: 20101005, end: 20101225
  4. TEMODAL [Suspect]
     Indication: ANAPLASTIC ASTROCYTOMA
     Dosage: PO, 135 MG/M2;QD;IV, 150 MG/M2;QD;IV
     Route: 048
     Dates: start: 20110301, end: 20110305
  5. NIVADIL [Concomitant]
  6. SYMMETREL [Concomitant]
  7. PHENYTOIN SODIUM CAP [Concomitant]
  8. KYTRIL  01178102/ [Concomitant]

REACTIONS (3)
  - ANAPLASTIC ASTROCYTOMA [None]
  - PNEUMONIA [None]
  - NEOPLASM PROGRESSION [None]
